FAERS Safety Report 19699249 (Version 3)
Quarter: 2022Q1

REPORT INFORMATION
  Report Type: Report from Study
  Country: US (occurrence: US)
  Receive Date: 20210813
  Receipt Date: 20220222
  Transmission Date: 20220423
  Serious: Yes (Other)
  Sender: FDA-Public Use
  Company Number: US-JAZZ-2021-US-014720

PATIENT
  Sex: Female

DRUGS (5)
  1. XYREM [Suspect]
     Active Substance: SODIUM OXYBATE
     Indication: Narcolepsy
     Dosage: 2.25 GRAM, BID
     Route: 048
     Dates: start: 201910, end: 201910
  2. XYREM [Suspect]
     Active Substance: SODIUM OXYBATE
     Dosage: 4.5 GRAM, BID
     Route: 048
     Dates: start: 201911, end: 202102
  3. ARMODAFINIL [Concomitant]
     Active Substance: ARMODAFINIL
     Indication: Product used for unknown indication
     Dosage: UNK
     Route: 048
     Dates: start: 202002
  4. CHOLECALCIFEROL [Concomitant]
     Active Substance: CHOLECALCIFEROL
     Indication: Product used for unknown indication
     Dosage: UNK
     Route: 048
     Dates: start: 201903
  5. VITAMIN D2 [Concomitant]
     Active Substance: ERGOCALCIFEROL
     Dosage: UNK
     Route: 048
     Dates: start: 201906

REACTIONS (13)
  - Toxic nodular goitre [Not Recovered/Not Resolved]
  - Haemorrhoids [Recovered/Resolved]
  - Anal fissure [Recovered/Resolved]
  - Vitiligo [Unknown]
  - Pharyngitis [Unknown]
  - Cerumen impaction [Unknown]
  - Influenza [Unknown]
  - Otitis externa [Unknown]
  - Urinary tract infection [Recovered/Resolved]
  - Gastroenteritis viral [Recovered/Resolved]
  - Vitamin D decreased [Not Recovered/Not Resolved]
  - Obesity [Not Recovered/Not Resolved]
  - Snoring [Not Recovered/Not Resolved]
